FAERS Safety Report 8549270-9 (Version None)
Quarter: 2012Q3

REPORT INFORMATION
  Report Type: 
  Country: None (occurrence: None)
  Receive Date: 20120730
  Receipt Date: 20120719
  Transmission Date: 20120928
  Serious: Yes (Other)
  Sender: FDA-Public Use
  Company Number: JP-VERTEX PHARMACEUTICALS INC.-AE-2012-010911

PATIENT
  Age: 51 Year
  Sex: Male

DRUGS (9)
  1. ACETAMINOPHEN [Concomitant]
     Route: 048
     Dates: start: 20120525
  2. REBETOL [Concomitant]
     Route: 048
     Dates: start: 20120615
  3. PEG-INTRON [Concomitant]
     Indication: HEPATITIS C
     Route: 058
     Dates: start: 20120525, end: 20120615
  4. TELAVIC (TELAPREVIR) [Suspect]
     Indication: HEPATITIS C
     Route: 048
     Dates: start: 20120525
  5. REBETOL [Concomitant]
     Indication: HEPATITIS C
     Route: 048
     Dates: start: 20120525, end: 20120614
  6. FEBURIC [Concomitant]
     Route: 048
     Dates: start: 20120525
  7. OLMESARTAN MEDOXOMIL [Concomitant]
     Route: 048
  8. PEG-INTRON [Concomitant]
     Route: 058
     Dates: start: 20120622
  9. JUZENTAIHOTO [Concomitant]
     Route: 048
     Dates: start: 20120525

REACTIONS (1)
  - NEUTROPHIL COUNT DECREASED [None]
